FAERS Safety Report 4477664-X (Version None)
Quarter: 2004Q4

REPORT INFORMATION
  Report Type: 
  Country: None (occurrence: None)
  Receive Date: 20041013
  Receipt Date: 20041004
  Transmission Date: 20050328
  Serious: Yes (Hospitalization)
  Sender: FDA-Public Use
  Company Number: 002863

PATIENT
  Age: 56 Year
  Sex: Male

DRUGS (3)
  1. ZEBETA [Suspect]
     Dosage: 2.50 MG, QD, ORAL
     Route: 048
  2. CARVEDILOL [Suspect]
     Indication: CARDIAC FAILURE
  3. ATORVASTATIN (ATORVASTATIN) [Concomitant]

REACTIONS (9)
  - ASTHENIA [None]
  - CARDIAC FAILURE [None]
  - DYSPHAGIA [None]
  - DYSSTASIA [None]
  - MUSCULAR WEAKNESS [None]
  - MYOPATHY [None]
  - MYOPATHY TOXIC [None]
  - PARALYSIS FLACCID [None]
  - QUADRIPARESIS [None]
